FAERS Safety Report 8209891 (Version 3)
Quarter: 2014Q4

REPORT INFORMATION
  Report Type: Spontaneous
  Country: US (occurrence: US)
  Receive Date: 20111028
  Receipt Date: 20141010
  Transmission Date: 20150529
  Serious: No
  Sender: FDA-Public Use
  Company Number: US-AMGEN-USASP2010012099

PATIENT
  Age: 63 Year
  Sex: Female
  Weight: 63.5 kg

DRUGS (2)
  1. ENBREL [Suspect]
     Active Substance: ETANERCEPT
     Indication: RHEUMATOID ARTHRITIS
     Dosage: 50 MG, QWK
     Route: 058
     Dates: start: 2009, end: 201410
  2. ENBREL [Suspect]
     Active Substance: ETANERCEPT
     Dosage: UNK
     Route: 065

REACTIONS (5)
  - Injection site pruritus [Recovered/Resolved]
  - Injection site pain [Recovered/Resolved]
  - Injection site swelling [Recovered/Resolved]
  - Injection site discolouration [Recovered/Resolved]
  - Injection site discharge [Unknown]

NARRATIVE: CASE EVENT DATE: 201001
